FAERS Safety Report 21328731 (Version 2)
Quarter: 2022Q3

REPORT INFORMATION
  Report Type: Report from Study
  Country: US (occurrence: US)
  Receive Date: 20220913
  Receipt Date: 20220930
  Transmission Date: 20221026
  Serious: Yes (Hospitalization)
  Sender: FDA-Public Use
  Company Number: US-BEH-2022149483

PATIENT
  Age: 64 Year
  Sex: Female
  Weight: 63.492 kg

DRUGS (2)
  1. HIZENTRA [Suspect]
     Active Substance: HUMAN IMMUNOGLOBULIN G
     Indication: Primary immunodeficiency syndrome
     Dosage: 15 GRAM, BIW
     Route: 058
     Dates: start: 20220401
  2. HIZENTRA [Suspect]
     Active Substance: HUMAN IMMUNOGLOBULIN G
     Dosage: UNK
     Route: 065
     Dates: start: 20220918

REACTIONS (4)
  - Myocardial infarction [Not Recovered/Not Resolved]
  - No adverse event [Not Recovered/Not Resolved]
  - Product dose omission issue [Not Recovered/Not Resolved]
  - Mitral valve disease [Unknown]

NARRATIVE: CASE EVENT DATE: 20220828
